FAERS Safety Report 6766770-2 (Version None)
Quarter: 2010Q2

REPORT INFORMATION
  Report Type: 
  Country: None (occurrence: None)
  Receive Date: 20100611
  Receipt Date: 20100601
  Transmission Date: 20101027
  Serious: Yes (Other)
  Sender: FDA-Public Use
  Company Number: NL-CELGENEUS-114-21880-10060159

PATIENT
  Sex: Male
  Weight: 62 kg

DRUGS (7)
  1. REVLIMID [Suspect]
     Indication: MULTIPLE MYELOMA
     Route: 048
     Dates: start: 20090914, end: 20090928
  2. CYCLOSPORINE [Concomitant]
     Indication: PROPHYLAXIS
     Route: 048
     Dates: start: 20090619, end: 20090929
  3. COTRIM [Concomitant]
     Indication: PROPHYLAXIS
     Route: 048
     Dates: start: 20090622, end: 20090929
  4. FENTANYL PLASTER [Concomitant]
     Indication: PAIN
     Route: 062
     Dates: start: 20081130, end: 20090929
  5. PARACETAMOL [Concomitant]
     Indication: PAIN
     Route: 048
     Dates: start: 20090901, end: 20090929
  6. CALCITREX [Concomitant]
     Indication: PROPHYLAXIS
     Route: 048
     Dates: start: 20090622, end: 20090929
  7. PREDNISONE TAB [Concomitant]
     Indication: GRAFT VERSUS HOST DISEASE
     Route: 065

REACTIONS (1)
  - GRAFT VERSUS HOST DISEASE [None]
